FAERS Safety Report 10153169 (Version 1)
Quarter: 2014Q2

REPORT INFORMATION
  Report Type: Spontaneous
  Country: US (occurrence: US)
  Receive Date: 20140505
  Receipt Date: 20140505
  Transmission Date: 20141212
  Serious: No
  Sender: FDA-Public Use
  Company Number: US-GILEAD-2014-0101527

PATIENT
  Age: 82 Year
  Sex: Female

DRUGS (4)
  1. LETAIRIS [Suspect]
     Indication: PRODUCT USED FOR UNKNOWN INDICATION
     Dosage: 10 MG, UNK
     Route: 065
     Dates: start: 20100803
  2. TYVASO [Concomitant]
  3. LASIX                              /00032601/ [Concomitant]
  4. COUMADIN                           /00627701/ [Concomitant]

REACTIONS (1)
  - Dyspnoea [Not Recovered/Not Resolved]
